FAERS Safety Report 9617420 (Version 3)
Quarter: 2013Q4

REPORT INFORMATION
  Report Type: Spontaneous
  Country: US (occurrence: None)
  Receive Date: 20131009
  Receipt Date: 20131120
  Transmission Date: 20140711
  Serious: Yes (Hospitalization)
  Sender: FDA-Public Use
  Company Number: 2013MPI00581

PATIENT
  Age: 19 Year
  Sex: Female
  Weight: 109.1 kg

DRUGS (12)
  1. BRENTUXIMAB VEDOTIN [Suspect]
     Indication: HODGKIN^S DISEASE
     Dosage: QCYCLE
     Route: 042
     Dates: start: 20130709, end: 20130912
  2. DOXORUBICIN [Suspect]
     Indication: HODGKIN^S DISEASE
     Dosage: QCYCLE
     Route: 042
     Dates: start: 20130709, end: 20130912
  3. VINBLASTINE [Suspect]
     Indication: HODGKIN^S DISEASE
     Dosage: QCYCLE
     Route: 042
     Dates: start: 20130709, end: 20130912
  4. DACARBAZINE [Suspect]
     Indication: HODGKIN^S DISEASE
     Dosage: QCYCLE
     Route: 042
     Dates: start: 20130709, end: 20130912
  5. OXYCODONE (OXYCODONE) [Concomitant]
  6. COMPAZINE (PROCHLORPERAZINE MALEATE) [Concomitant]
  7. ATIVAN (LORAZEPAM) [Concomitant]
  8. LIDOCAINE (LIDOCAINE HYDROCHLORIDE) [Concomitant]
  9. LEVOTHROID (LEVOTHYROXINE SODIUM) [Concomitant]
  10. ZOFRAN (ONDANSETRON HYDROCHLORIDE) [Concomitant]
  11. BENADRYL (DIPHENHYDRAMINE HYDROCHLORIDE) [Concomitant]
  12. MAALOX (ALUMINUM HYDROXIDE GEL, MAGNESIUM HYDROXIDE) [Concomitant]

REACTIONS (31)
  - Febrile neutropenia [None]
  - Cardiac failure [None]
  - White blood cell count increased [None]
  - Haemoglobin decreased [None]
  - Haematocrit decreased [None]
  - Blood chloride decreased [None]
  - Blood lactic acid increased [None]
  - Blood potassium decreased [None]
  - Blood glucose increased [None]
  - Malaise [None]
  - Nausea [None]
  - Abdominal pain [None]
  - Myalgia [None]
  - Fatigue [None]
  - Chills [None]
  - Tonsillar hypertrophy [None]
  - Cardiac murmur [None]
  - Back pain [None]
  - Diarrhoea [None]
  - Oropharyngeal pain [None]
  - Epstein-Barr virus infection [None]
  - Sinus tachycardia [None]
  - Pulmonary oedema [None]
  - Interstitial lung disease [None]
  - Pleuritic pain [None]
  - Hypoxia [None]
  - Respiratory failure [None]
  - Cardiorenal syndrome [None]
  - Toxicity to various agents [None]
  - Pulmonary toxicity [None]
  - Cardiomyopathy [None]
